FAERS Safety Report 10614033 (Version 1)
Quarter: 2014Q4

REPORT INFORMATION
  Report Type: Spontaneous
  Country: DE (occurrence: DE)
  Receive Date: 20141128
  Receipt Date: 20141128
  Transmission Date: 20150529
  Serious: Yes (Other)
  Sender: FDA-Public Use
  Company Number: GXKR2014DE004351

PATIENT
  Sex: Male

DRUGS (1)
  1. MIRTAZAPIN 1A PHARMA [Suspect]
     Active Substance: MIRTAZAPINE
     Dosage: 15 MG, UNK
     Route: 048

REACTIONS (3)
  - Eye movement disorder [Unknown]
  - Visual impairment [Unknown]
  - Sensation of blood flow [Unknown]
